FAERS Safety Report 4840018-8 (Version None)
Quarter: 2005Q4

REPORT INFORMATION
  Report Type: 
  Country: None (occurrence: None)
  Receive Date: 20051125
  Receipt Date: 20051109
  Transmission Date: 20060501
  Serious: Yes (Other)
  Sender: FDA-Public Use
  Company Number: PHHO2005JP17815

PATIENT
  Age: 54 Year
  Sex: Male
  Weight: 138.9 kg

DRUGS (5)
  1. VISUDYNE [Suspect]
     Indication: MACULAR DEGENERATION
     Dosage: 6 MG/M^2 ONCE IV
     Route: 042
     Dates: start: 20041214, end: 20041214
  2. VISUDYNE [Suspect]
     Indication: MACULAR DEGENERATION
     Dosage: 6 MG/M^2 ONCE IV
     Route: 042
     Dates: start: 20040910, end: 20040910
  3. ADONA AC-17 [Concomitant]
  4. DIAMOX [Concomitant]
  5. ASPARA K [Concomitant]

REACTIONS (10)
  - ABDOMINAL PAIN UPPER [None]
  - APPLICATION SITE PAIN [None]
  - DISEASE PROGRESSION [None]
  - EYE PAIN [None]
  - HEADACHE [None]
  - HYPOAESTHESIA [None]
  - MACULAR DEGENERATION [None]
  - NAUSEA [None]
  - SHOULDER PAIN [None]
  - VISUAL ACUITY REDUCED [None]
